FAERS Safety Report 6024114-8 (Version None)
Quarter: 2008Q4

REPORT INFORMATION
  Report Type: 
  Country: None (occurrence: None)
  Receive Date: 20081224
  Receipt Date: 20081212
  Transmission Date: 20090506
  Serious: Yes (Life-Threatening, Hospitalization)
  Sender: FDA-Public Use
  Company Number: 20085964

PATIENT
  Sex: Male

DRUGS (1)
  1. LIORESAL [Suspect]
     Indication: MUSCLE SPASTICITY
     Dosage: MCG, DAILY, INTRATHECAL
     Route: 037

REACTIONS (8)
  - BURNING SENSATION [None]
  - CATATONIA [None]
  - CHEST DISCOMFORT [None]
  - INAPPROPRIATE DEVICE PROGRAMMING [None]
  - MUSCLE SPASMS [None]
  - OVERDOSE [None]
  - PAIN [None]
  - UNRESPONSIVE TO STIMULI [None]
